FAERS Safety Report 4749200-1 (Version None)
Quarter: 2005Q3

REPORT INFORMATION
  Report Type: 
  Country: None (occurrence: None)
  Receive Date: 20050812
  Receipt Date: 20050418
  Transmission Date: 20060218
  Serious: Yes (Other)
  Sender: FDA-Public Use
  Company Number: 402403

PATIENT
  Sex: 0

DRUGS (1)
  1. PEGASYS [Suspect]
     Dosage: OTHER
     Route: 050

REACTIONS (1)
  - PULMONARY EMBOLISM [None]
